FAERS Safety Report 5938711-9 (Version None)
Quarter: 2008Q4

REPORT INFORMATION
  Report Type: 
  Country: None (occurrence: None)
  Receive Date: 20081103
  Receipt Date: 20081020
  Transmission Date: 20090506
  Serious: Yes (Death)
  Sender: FDA-Public Use
  Company Number: DE-ROCHE-592665

PATIENT
  Age: 23 Year
  Sex: Female
  Weight: 50 kg

DRUGS (2)
  1. VESANOID [Suspect]
     Indication: ACUTE PROMYELOCYTIC LEUKAEMIA
     Route: 048
     Dates: start: 20080712, end: 20080715
  2. VESANOID [Suspect]
     Dosage: DOSAGE REGIMEN 40 MG, 1 DAY
     Route: 048
     Dates: start: 20080722, end: 20080820

REACTIONS (2)
  - NEUTROPENIC SEPSIS [None]
  - RETINOIC ACID SYNDROME [None]
